FAERS Safety Report 14488281 (Version 1)
Quarter: 2018Q1

REPORT INFORMATION
  Report Type: Report from Study
  Country: IL (occurrence: IL)
  Receive Date: 20180205
  Receipt Date: 20180205
  Transmission Date: 20180509
  Serious: Yes (Other)
  Sender: FDA-Public Use
  Company Number: IL-TEVA-2018-IL-853382

PATIENT
  Age: 67 Year
  Sex: Female

DRUGS (8)
  1. DEXAMETHASONE. [Suspect]
     Active Substance: DEXAMETHASONE
     Indication: MANTLE CELL LYMPHOMA
     Dosage: 2 CYCLES OF HYPER-CVAD
     Route: 065
     Dates: start: 2010
  2. CYTARABINE. [Suspect]
     Active Substance: CYTARABINE
     Indication: MANTLE CELL LYMPHOMA
     Dosage: 2 CYCLES OF HYPER-CVAD
     Route: 065
     Dates: start: 2010
  3. METHOTREXATE. [Suspect]
     Active Substance: METHOTREXATE
     Indication: MANTLE CELL LYMPHOMA
     Dosage: 2 CYCLES OF HYPER-CVAD
     Route: 065
     Dates: start: 2010
  4. VINCRISTINE [Suspect]
     Active Substance: VINCRISTINE
     Indication: MANTLE CELL LYMPHOMA
     Dosage: 2 CYCLES OF HYPER-CVAD
     Route: 065
     Dates: start: 2010
  5. DOXORUBICIN [Suspect]
     Active Substance: DOXORUBICIN
     Indication: MANTLE CELL LYMPHOMA
     Dosage: 2 CYCLES OF HYPER-CVAD
     Route: 065
     Dates: start: 2010
  6. CYCLOPHOSPHAMIDE. [Suspect]
     Active Substance: CYCLOPHOSPHAMIDE
     Indication: MANTLE CELL LYMPHOMA
     Dosage: 2 CYCLES OF HYPER-CVAD
     Route: 065
     Dates: start: 2010
  7. RITUXIMAB. [Suspect]
     Active Substance: RITUXIMAB
     Indication: MANTLE CELL LYMPHOMA
     Dosage: 2 CYCLES OF HYPER-CVAD
     Route: 065
     Dates: start: 2010
  8. RITUXIMAB. [Suspect]
     Active Substance: RITUXIMAB
     Dosage: MAINTENANCE RITUXIMAB; EVERY 2 MONTHS
     Route: 065
     Dates: end: 201305

REACTIONS (2)
  - Central nervous system enteroviral infection [Recovering/Resolving]
  - Meningoencephalitis viral [Recovering/Resolving]
